FAERS Safety Report 4605802-4 (Version None)
Quarter: 2005Q1

REPORT INFORMATION
  Report Type: 
  Country: None (occurrence: None)
  Receive Date: 20050115
  Receipt Date: 20040819
  Transmission Date: 20050727
  Serious: Yes (Hospitalization)
  Sender: FDA-Public Use
  Company Number: A03200402856

PATIENT
  Sex: Male

DRUGS (1)
  1. AMBIEN [Suspect]
     Dosage: 10 MG ONCE; ORAL
     Route: 048

REACTIONS (3)
  - AMNESIA [None]
  - CONFUSIONAL STATE [None]
  - FALL [None]
